FAERS Safety Report 8812034 (Version 1)
Quarter: 2012Q4

REPORT INFORMATION
  Report Type: 
  Country: US (occurrence: IL)
  Receive Date: 20120927
  Receipt Date: 20120927
  Transmission Date: 20130627
  Serious: Yes (Hospitalization)
  Sender: FDA-Public Use
  Company Number: PHHO2012IL013667

PATIENT
  Age: 75 Year
  Sex: Male

DRUGS (9)
  1. ACETYLSALICYLIC ACID [Suspect]
  2. SAXAGLIPTIN [Suspect]
     Dosage: UNK
     Dates: start: 20101014
  3. PLAVIX [Suspect]
  4. BEZALIP [Concomitant]
     Dosage: UNK
     Dates: start: 20111228
  5. CONTROLOC [Concomitant]
     Dosage: UNK
     Dates: start: 20111228
  6. NIACIN [Concomitant]
  7. METFORMIN HYDROCHLORIDE [Concomitant]
  8. AMARYL [Concomitant]
  9. PRANDASE [Concomitant]

REACTIONS (1)
  - Gastrointestinal haemorrhage [Recovered/Resolved]
